FAERS Safety Report 14509998 (Version 4)
Quarter: 2019Q3

REPORT INFORMATION
  Report Type: Spontaneous
  Country: RO (occurrence: RO)
  Receive Date: 20180209
  Receipt Date: 20190905
  Transmission Date: 20191004
  Serious: Yes (Hospitalization, Congenital Anomaly, Other)
  Sender: FDA-Public Use
  Company Number: RO-AUROBINDO-AUR-APL-2018-005700

PATIENT

DRUGS (3)
  1. ISENTRESS [Suspect]
     Active Substance: RALTEGRAVIR POTASSIUM
     Indication: PRODUCT USED FOR UNKNOWN INDICATION
     Dosage: UNK
     Route: 064
     Dates: start: 20151001
  2. INSULIN [Concomitant]
     Active Substance: INSULIN NOS
     Indication: PRODUCT USED FOR UNKNOWN INDICATION
     Dosage: UNK
     Route: 064
  3. ABACAVIR+LAMIVUDINE [Suspect]
     Active Substance: ABACAVIR SULFATE\LAMIVUDINE
     Indication: PRODUCT USED FOR UNKNOWN INDICATION
     Dosage: UNK
     Route: 064
     Dates: start: 20151001

REACTIONS (17)
  - Atrial septal defect [Unknown]
  - Pulmonary artery stenosis [Unknown]
  - Arterial disorder [Unknown]
  - Apgar score abnormal [Unknown]
  - Patent ductus arteriosus [Unknown]
  - Cerebral calcification [Unknown]
  - Resuscitation [Unknown]
  - Poor feeding infant [Unknown]
  - Hypoglycaemia neonatal [Unknown]
  - Double ureter [Unknown]
  - Lenticulostriatal vasculopathy [Unknown]
  - Premature baby [Unknown]
  - Microcephaly [Unknown]
  - Apnoea [Unknown]
  - Infantile apnoea [Unknown]
  - Foetal exposure during pregnancy [Unknown]
  - Oxygen saturation decreased [Unknown]

NARRATIVE: CASE EVENT DATE: 2016
